FAERS Safety Report 4896057-4 (Version None)
Quarter: 2005Q4

REPORT INFORMATION
  Report Type: 
  Country: None (occurrence: None)
  Receive Date: 20051220
  Receipt Date: 20050523
  Transmission Date: 20060501
  Serious: Yes (Other)
  Sender: FDA-Public Use
  Company Number: US129549

PATIENT
  Age: 58 Year
  Sex: Male
  Weight: 136.2 kg

DRUGS (10)
  1. ENBREL [Suspect]
     Indication: PSORIASIS
     Dosage: 50MG, 1 IN 1 WEEKS, SC
     Route: 058
     Dates: start: 20040616, end: 20050428
  2. FLUTICASONE PROPIONATE [Concomitant]
  3. KETOCONAZOLE [Concomitant]
  4. FLUOCINONIDE [Concomitant]
  5. HYDROCORTISONE [Concomitant]
  6. CALCIPOTRIENE [Concomitant]
  7. CLOBETASOL PROPIONATE [Concomitant]
  8. CICLOPIROX OLAMINE [Concomitant]
  9. CLINDAMYCIN HYDROCHLORIDE [Concomitant]
  10. BETAMETHASONE VALERATE [Concomitant]

REACTIONS (2)
  - DYSPLASTIC NAEVUS SYNDROME [None]
  - MALIGNANT MELANOMA IN SITU [None]
